FAERS Safety Report 18953272 (Version 2)
Quarter: 2021Q2

REPORT INFORMATION
  Report Type: Report from Study
  Country: AU (occurrence: AU)
  Receive Date: 20210301
  Receipt Date: 20210418
  Transmission Date: 20210717
  Serious: Yes (Other)
  Sender: FDA-Public Use
  Company Number: NVSC2021AU035280

PATIENT
  Age: 75 Year
  Sex: Female

DRUGS (2)
  1. MAYZENT [Suspect]
     Active Substance: SIPONIMOD
     Indication: SECONDARY PROGRESSIVE MULTIPLE SCLEROSIS
     Dosage: 2 MG, QD
     Route: 048
     Dates: start: 20210120
  2. MAYZENT [Suspect]
     Active Substance: SIPONIMOD
     Dosage: 2 MG, QD
     Route: 048
     Dates: start: 202103

REACTIONS (5)
  - Dysarthria [Unknown]
  - Tremor [Recovered/Resolved with Sequelae]
  - Pigmentation disorder [Unknown]
  - Transient ischaemic attack [Unknown]
  - Vomiting [Unknown]

NARRATIVE: CASE EVENT DATE: 20210202
